FAERS Safety Report 18419437 (Version 1)
Quarter: 2020Q4

REPORT INFORMATION
  Report Type: Spontaneous
  Country: US (occurrence: US)
  Receive Date: 20201023
  Receipt Date: 20201023
  Transmission Date: 20210114
  Serious: No
  Sender: FDA-Public Use
  Company Number: None

PATIENT
  Age: 82 Year
  Sex: Female

DRUGS (1)
  1. DESONIDE OINTMENT [Suspect]
     Active Substance: DESONIDE
     Indication: ERYTHEMA
     Route: 061
     Dates: start: 20201021, end: 20201021

REACTIONS (1)
  - Dizziness [None]

NARRATIVE: CASE EVENT DATE: 20201021
